FAERS Safety Report 9200854 (Version 1)
Quarter: 2013Q2

REPORT INFORMATION
  Report Type: Report from Study
  Country: QA (occurrence: QA)
  Receive Date: 20130401
  Receipt Date: 20130401
  Transmission Date: 20140414
  Serious: Yes (Other)
  Sender: FDA-Public Use
  Company Number: QA-COVIDIEN/TYCO HEALTHCARE/MALLINCKRODT-T201301457

PATIENT
  Sex: 0

DRUGS (1)
  1. SODIUM IODIDE (I 131) [Suspect]
     Indication: RADIOACTIVE IODINE THERAPY
     Dosage: UNK

REACTIONS (1)
  - Hypothyroidism [Unknown]
